FAERS Safety Report 24788198 (Version 3)
Quarter: 2025Q1

REPORT INFORMATION
  Report Type: Spontaneous
  Country: BR (occurrence: BR)
  Receive Date: 20241230
  Receipt Date: 20250306
  Transmission Date: 20250409
  Serious: Yes (Hospitalization)
  Sender: BOEHRINGER INGELHEIM
  Company Number: BR-Komodo Health-a23aa000004tWplAAE

PATIENT
  Age: 68 Year
  Sex: Female
  Weight: 43 kg

DRUGS (4)
  1. OLODATEROL HYDROCHLORIDE\TIOTROPIUM BROMIDE MONOHYDRATE [Suspect]
     Active Substance: OLODATEROL HYDROCHLORIDE\TIOTROPIUM BROMIDE MONOHYDRATE
     Indication: Lung infiltration
     Dosage: TWO JETS A DAY, AT 8 A.M.
     Dates: start: 2024, end: 2024
  2. OLODATEROL HYDROCHLORIDE\TIOTROPIUM BROMIDE MONOHYDRATE [Suspect]
     Active Substance: OLODATEROL HYDROCHLORIDE\TIOTROPIUM BROMIDE MONOHYDRATE
     Indication: Fatigue
  3. Nicotina [Concomitant]
     Indication: Product used for unknown indication
     Dates: start: 2024, end: 2024
  4. Nicotina [Concomitant]

REACTIONS (8)
  - Lung infiltration [Recovered/Resolved]
  - Intentional product use issue [Recovered/Resolved]
  - Oxygen saturation decreased [Unknown]
  - Fatigue [Unknown]
  - Tobacco withdrawal symptoms [Unknown]
  - Weight increased [Unknown]
  - Fatigue [Unknown]
  - Device use issue [Unknown]

NARRATIVE: CASE EVENT DATE: 20240101
